FAERS Safety Report 8959252 (Version 1)
Quarter: 2012Q4

REPORT INFORMATION
  Report Type: 
  Country: GB (occurrence: GB)
  Receive Date: 20121212
  Receipt Date: 20121212
  Transmission Date: 20130627
  Serious: Yes (Hospitalization)
  Sender: FDA-Public Use
  Company Number: GB-TEVA-374071ISR

PATIENT
  Age: 70 Year
  Sex: Male

DRUGS (1)
  1. METFORMIN [Suspect]
     Indication: INTENTIONAL OVERDOSE
     Dosage: unknown quantity was taken
     Route: 048

REACTIONS (6)
  - Death [Fatal]
  - Renal failure acute [Not Recovered/Not Resolved]
  - Lactic acidosis [Recovering/Resolving]
  - Suicide attempt [Unknown]
  - Intentional overdose [Recovering/Resolving]
  - Nosocomial infection [Unknown]
